FAERS Safety Report 24989980 (Version 1)
Quarter: 2025Q1

REPORT INFORMATION
  Report Type: Spontaneous
  Country: US (occurrence: US)
  Receive Date: 20250220
  Receipt Date: 20250220
  Transmission Date: 20250409
  Serious: No
  Sender: MYLAN
  Company Number: US-MYLANLABS-2025M1012877

PATIENT
  Age: 66 Year
  Sex: Male
  Weight: 101.6 kg

DRUGS (1)
  1. GABAPENTIN [Suspect]
     Active Substance: GABAPENTIN
     Indication: Pain
     Dosage: 1200 MILLIGRAM, TID (2 TAB PO THREE TIMES A DAILY)
     Route: 048

REACTIONS (1)
  - Off label use [Unknown]
